APPROVED DRUG PRODUCT: LIDOCAINE
Active Ingredient: LIDOCAINE
Strength: 5%
Dosage Form/Route: OINTMENT;TOPICAL
Application: A040911 | Product #001 | TE Code: AT
Applicant: SEPTODONT INC
Approved: May 23, 2011 | RLD: No | RS: No | Type: RX